FAERS Safety Report 25930808 (Version 1)
Quarter: 2025Q4

REPORT INFORMATION
  Report Type: Spontaneous
  Country: US (occurrence: None)
  Receive Date: 20251016
  Receipt Date: 20251016
  Transmission Date: 20260118
  Serious: Yes (Hospitalization)
  Sender: FDA-CTU
  Company Number: None

PATIENT
  Age: 47 Year
  Sex: Male

DRUGS (1)
  1. OTEZLA [Suspect]
     Active Substance: APREMILAST
     Indication: Antiphospholipid syndrome
     Dosage: TAKE 1 TABLET BY MOUTH TWICE DAILY AS DIRECTED.
     Route: 048

REACTIONS (1)
  - Colonoscopy [None]

NARRATIVE: CASE EVENT DATE: 20251008
